FAERS Safety Report 9525760 (Version 3)
Quarter: 2013Q4

REPORT INFORMATION
  Report Type: Spontaneous
  Country: DE (occurrence: DE)
  Receive Date: 20130916
  Receipt Date: 20131007
  Transmission Date: 20140711
  Serious: No
  Sender: FDA-Public Use
  Company Number: DE-BIOGENIDEC-2013BI084380

PATIENT
  Age: 44 Year
  Sex: Female

DRUGS (1)
  1. TYSABRI [Suspect]
     Indication: PROGRESSIVE RELAPSING MULTIPLE SCLEROSIS
     Route: 042
     Dates: start: 2008, end: 201308

REACTIONS (1)
  - Multiple sclerosis relapse [Recovered/Resolved]
